FAERS Safety Report 8756727 (Version 2)
Quarter: 2012Q4

REPORT INFORMATION
  Report Type: 
  Country: US (occurrence: US)
  Receive Date: 20120828
  Receipt Date: 20121218
  Transmission Date: 20130627
  Serious: Yes (Hospitalization, Other)
  Sender: FDA-Public Use
  Company Number: US-BAYER-2012-086422

PATIENT
  Age: 29 Year
  Sex: Female
  Weight: 106.58 kg

DRUGS (4)
  1. YASMIN [Suspect]
     Indication: BIRTH CONTROL
     Dosage: UNK
     Dates: start: 200510, end: 20111231
  2. YASMIN [Suspect]
     Indication: MENSTRUAL CYCLE MANAGEMENT
  3. OFLOXACIN [Concomitant]
  4. METRONIDAZOLE [Concomitant]

REACTIONS (7)
  - Cholecystectomy [None]
  - Ovarian cyst [None]
  - Injury [None]
  - Pain [None]
  - Emotional distress [None]
  - Anxiety [None]
  - Psychological trauma [None]
